FAERS Safety Report 22328614 (Version 1)
Quarter: 2023Q2

REPORT INFORMATION
  Report Type: Spontaneous
  Country: US (occurrence: US)
  Receive Date: 20230517
  Receipt Date: 20230517
  Transmission Date: 20230721
  Serious: No
  Sender: FDA-Public Use
  Company Number: US-RADIUS HEALTH INC.-2023US000313

PATIENT
  Sex: Female

DRUGS (1)
  1. TYMLOS [Suspect]
     Active Substance: ABALOPARATIDE
     Indication: Product used for unknown indication
     Dosage: 80 MCG, QD
     Route: 058

REACTIONS (6)
  - Nasopharyngitis [Unknown]
  - Feeling cold [Unknown]
  - Chills [Unknown]
  - Nausea [Unknown]
  - Heart rate increased [Unknown]
  - Product administered to patient of inappropriate age [Unknown]
